FAERS Safety Report 7772176-X (Version None)
Quarter: 2011Q3

REPORT INFORMATION
  Report Type: 
  Country: None (occurrence: None)
  Receive Date: 20110922
  Receipt Date: 20110502
  Transmission Date: 20111222
  Serious: No
  Sender: FDA-Public Use
  Company Number: US-ASTRAZENECA-2010SE52007

PATIENT
  Age: 55 Year
  Sex: Female

DRUGS (3)
  1. SEROQUEL XR [Suspect]
     Route: 048
     Dates: start: 20100201
  2. SEROQUEL XR [Suspect]
     Route: 048
     Dates: start: 20100201
  3. SEROQUEL XR [Suspect]
     Indication: DEPRESSION
     Dosage: UNDER 150 MG DAILY
     Route: 048
     Dates: start: 20100201

REACTIONS (5)
  - BRADYPHRENIA [None]
  - FEELING ABNORMAL [None]
  - INFLUENZA [None]
  - SERUM SEROTONIN DECREASED [None]
  - FIBROMYALGIA [None]
